FAERS Safety Report 5168416-6 (Version None)
Quarter: 2006Q4

REPORT INFORMATION
  Report Type: 
  Country: None (occurrence: None)
  Receive Date: 20061201
  Receipt Date: 20060727
  Transmission Date: 20070319
  Serious: Yes (Hospitalization)
  Sender: FDA-Public Use
  Company Number: 2006087531

PATIENT
  Age: 26 Year
  Sex: Female
  Weight: 67.7 kg

DRUGS (17)
  1. SILDENAFIL CITRATE [Suspect]
     Indication: PULMONARY HYPERTENSION
     Dosage: 75 MG (25 MG, 3 IN 1 D), ORAL
     Route: 048
     Dates: start: 20030512
  2. FLOLAN [Suspect]
     Indication: PULMONARY HYPERTENSION
     Dosage: INTRAVENOUS
     Route: 042
     Dates: start: 20030502
  3. TRACLEER [Suspect]
     Indication: PULMONARY HYPERTENSION
     Dosage: 125 MG,ORAL
     Route: 048
     Dates: start: 20050926
  4. WARFARIN SODIUM [Concomitant]
  5. PAXIL [Concomitant]
  6. ZOLPIDEM TARTRATE [Concomitant]
  7. MAGNESIUM OXIDE [Concomitant]
  8. DEXTROMETHORPHAN HYDROBROMIDE [Concomitant]
  9. ASTOMIN                 (DIMEMORFAN PHOSPHATE) [Concomitant]
  10. LASIX [Concomitant]
  11. FERRO-GRADUMET           (FERROUS SULFATE) [Concomitant]
  12. BIOFERMIN R       (STREPTOCOCCUS FAECALIS) [Concomitant]
  13. POTASSIUM IODIDE [Concomitant]
  14. LANSOPRAZOLE [Concomitant]
  15. METOPROLOL TARTRATE [Concomitant]
  16. ALDACTONE [Concomitant]
  17. MERCAZOLE          (THIAMAZOLE) [Concomitant]

REACTIONS (6)
  - DIARRHOEA [None]
  - HEPATIC FUNCTION ABNORMAL [None]
  - HYPERTHYROIDISM [None]
  - PLATELET COUNT DECREASED [None]
  - RIGHT VENTRICULAR FAILURE [None]
  - WEIGHT DECREASED [None]
